FAERS Safety Report 17421296 (Version 2)
Quarter: 2020Q2

REPORT INFORMATION
  Report Type: Spontaneous
  Country: US (occurrence: US)
  Receive Date: 20200214
  Receipt Date: 20200609
  Transmission Date: 20200713
  Serious: Yes (Hospitalization, Disabling, Other)
  Sender: FDA-Public Use
  Company Number: US-009507513-2002USA005131

PATIENT
  Age: 36 Year
  Sex: Female

DRUGS (2)
  1. AVASTIN (ATORVASTATIN CALCIUM) [Concomitant]
     Active Substance: ATORVASTATIN CALCIUM
     Dosage: UNK
  2. KEYTRUDA [Suspect]
     Active Substance: PEMBROLIZUMAB
     Indication: BRAIN NEOPLASM
     Dosage: UNK
     Dates: start: 201905

REACTIONS (2)
  - Product use in unapproved indication [Unknown]
  - Paraplegia [Unknown]

NARRATIVE: CASE EVENT DATE: 201911
